FAERS Safety Report 4325289-9 (Version None)
Quarter: 2004Q1

REPORT INFORMATION
  Report Type: 
  Country: None (occurrence: None)
  Receive Date: 20040324
  Receipt Date: 20040308
  Transmission Date: 20041129
  Serious: Yes (Disabling, Other)
  Sender: FDA-Public Use
  Company Number: PHBS2004TW01930

PATIENT
  Age: 27 Year
  Sex: Female

DRUGS (2)
  1. VISUDYNE [Suspect]
     Indication: CHOROIDAL NEOVASCULARISATION
     Dates: start: 20030226, end: 20030226
  2. STEROIDS [Concomitant]

REACTIONS (6)
  - DRUG INEFFECTIVE [None]
  - HEADACHE [None]
  - RETINAL HAEMORRHAGE [None]
  - RETINAL NEOVASCULARISATION [None]
  - SCOTOMA [None]
  - VISUAL ACUITY REDUCED [None]
